FAERS Safety Report 5317921-8 (Version None)
Quarter: 2007Q2

REPORT INFORMATION
  Report Type: 
  Country: None (occurrence: None)
  Receive Date: 20070507
  Receipt Date: 20070503
  Transmission Date: 20071010
  Serious: Yes (Hospitalization)
  Sender: FDA-Public Use
  Company Number: B0469257A

PATIENT
  Age: 48 Year
  Sex: Female
  Weight: 75 kg

DRUGS (1)
  1. AUGMENTIN '125' [Suspect]
     Dosage: 1UNIT SINGLE DOSE
     Route: 048
     Dates: start: 20070410, end: 20070410

REACTIONS (4)
  - ANAPHYLACTIC REACTION [None]
  - ERYTHEMA [None]
  - FACE OEDEMA [None]
  - MALAISE [None]
